FAERS Safety Report 4310847-8 (Version None)
Quarter: 2004Q1

REPORT INFORMATION
  Report Type: 
  Country: None (occurrence: None)
  Receive Date: 20040302
  Receipt Date: 20040213
  Transmission Date: 20041129
  Serious: Yes (Other)
  Sender: FDA-Public Use
  Company Number: DSA_24022_2004

PATIENT
  Age: 67 Year
  Sex: Female

DRUGS (5)
  1. ENALAPRIL MALEATE [Suspect]
     Indication: ESSENTIAL HYPERTENSION
     Dosage: 10 MG Q DAY PO
     Route: 048
     Dates: start: 19901209
  2. SIMVASTATIN [Suspect]
     Dosage: 10 MG QD PO
     Route: 048
     Dates: start: 19901227, end: 19910221
  3. ISOPTIN TAB [Suspect]
     Indication: ESSENTIAL HYPERTENSION
     Dosage: 480 MG Q DAY PO
     Route: 048
     Dates: start: 19890101
  4. NATRILIX [Suspect]
     Indication: ESSENTIAL HYPERTENSION
     Dosage: 2.5 MG Q DAY PO
     Route: 048
     Dates: start: 19890101
  5. SOLPRIN [Suspect]
     Dosage: 150 MG Q DAY PO
     Route: 048
     Dates: start: 19890101

REACTIONS (2)
  - BLOOD CREATINE PHOSPHOKINASE INCREASED [None]
  - BLOOD CREATINE PHOSPHOKINASE MM INCREASED [None]
